FAERS Safety Report 13968046 (Version 2)
Quarter: 2017Q4

REPORT INFORMATION
  Report Type: Spontaneous
  Country: JP (occurrence: JP)
  Receive Date: 20170914
  Receipt Date: 20171128
  Transmission Date: 20180320
  Serious: Yes (Life-Threatening, Other)
  Sender: FDA-Public Use
  Company Number: JP-GUERBET-JP-20170157

PATIENT
  Age: 67 Year
  Sex: Female

DRUGS (1)
  1. MAGNESCOPE INTRAVENOUS INJECTION 38% SYRINGE 10ML [Suspect]
     Active Substance: GADOTERATE MEGLUMINE
     Indication: NUCLEAR MAGNETIC RESONANCE IMAGING BRAIN
     Route: 065
     Dates: start: 20170802, end: 20170802

REACTIONS (2)
  - Anaphylactoid reaction [Recovering/Resolving]
  - Panic attack [Recovering/Resolving]

NARRATIVE: CASE EVENT DATE: 20170802
